FAERS Safety Report 24051645 (Version 5)
Quarter: 2024Q3

REPORT INFORMATION
  Report Type: Report from Study
  Country: IT (occurrence: IT)
  Receive Date: 20240704
  Receipt Date: 20240919
  Transmission Date: 20241017
  Serious: Yes (Other)
  Sender: BAXTER
  Company Number: IT-ROCHE-2816936

PATIENT
  Age: 62 Year
  Sex: Male

DRUGS (11)
  1. CYCLOPHOSPHAMIDE [Suspect]
     Active Substance: CYCLOPHOSPHAMIDE
     Indication: Product used for unknown indication
     Dosage: 1340 MG, 28 DAYS BETWEEN C1 AND C2, FROM C2 TO C6 EVERY 21 DAYS
     Route: 065
  2. DOXORUBICIN [Suspect]
     Active Substance: DOXORUBICIN
     Indication: Product used for unknown indication
     Dosage: 89 MG, 28 DAYS BETWEEN C1 AND C2, FROM C2 TO C6 EVERY 21 DAYS.
     Route: 065
  3. VINCRISTINE [Suspect]
     Active Substance: VINCRISTINE
     Indication: Product used for unknown indication
     Dosage: 1 MG, 28 DAYS BETWEEN C1 AND C2, FROM C2 TO C6 EVERY 21 DAYS (STRENGTH: 1 MG / 1 ML)
     Route: 065
  4. VINCRISTINE [Suspect]
     Active Substance: VINCRISTINE
     Dosage: 1 MG, 28 DAYS BETWEEN C1 AND C2, FROM C2 TO C6 EVERY 21 DAYS (STRENGTH: 1 MG / 1 ML)
     Route: 065
  5. PREDNISONE [Suspect]
     Active Substance: PREDNISONE
     Indication: Product used for unknown indication
     Dosage: 125 MG, 28 DAYS BETWEEN C1 AND C2, FROM C2 TO C6 EVERY 21 DAYS
     Route: 065
  6. PREDNISONE [Suspect]
     Active Substance: PREDNISONE
     Dosage: 50 MG (MILLIGRAM), STOP DATE: 08-AUG-2020
     Route: 065
  7. PREDNISONE [Suspect]
     Active Substance: PREDNISONE
     Dosage: 25 MILLIGRAM, STOP DATE: 10-AUG-2020
     Route: 065
  8. OBINUTUZUMAB [Suspect]
     Active Substance: OBINUTUZUMAB
     Indication: Follicular lymphoma
     Dosage: UNK (STRENGTH: 25 MG / 1 ML, STRENGTH NAME: GAZYVA)
     Route: 042
  9. OBINUTUZUMAB [Suspect]
     Active Substance: OBINUTUZUMAB
     Dosage: 1000 MG, EVERY 21 DAYS, NUMBER OF CYCLES RECEIVED (AT STUDY ENTRY):3INDUCTION PHASE: 1000 MILLIGRAM
     Route: 042
  10. OBINUTUZUMAB [Suspect]
     Active Substance: OBINUTUZUMAB
     Dosage: UNK, OBINUTUZUMAB LAST DOSE ADMINISTERED BEFORE PARESTHESIA AND ITCHING 10/12/2021OBINUTUZUMAB LAST
     Route: 042
  11. OBINUTUZUMAB [Suspect]
     Active Substance: OBINUTUZUMAB
     Dosage: UNK (STRENGTH: 25 MG / 1 ML, STRENGTH NAME: GAZYVA)
     Route: 042

REACTIONS (19)
  - Erectile dysfunction [Not Recovered/Not Resolved]
  - Neutropenia [Recovered/Resolved]
  - Neutropenia [Recovered/Resolved]
  - Off label use [Unknown]
  - Off label use [Unknown]
  - Off label use [Unknown]
  - Blepharitis [Recovered/Resolved]
  - Dysuria [Recovered/Resolved]
  - Dysuria [Recovered/Resolved]
  - Anal haemorrhage [Recovered/Resolved]
  - Tinnitus [Recovered/Resolved]
  - Anaemia [Recovered/Resolved]
  - Paraesthesia [Not Recovered/Not Resolved]
  - Cough [Recovering/Resolving]
  - Conjunctivitis [Recovered/Resolved]
  - Pruritus [Recovered/Resolved]
  - Nausea [Recovered/Resolved]
  - Influenza [Recovered/Resolved]
  - Diarrhoea [Recovered/Resolved]

NARRATIVE: CASE EVENT DATE: 20200524
